FAERS Safety Report 16509265 (Version 1)
Quarter: 2019Q3

REPORT INFORMATION
  Report Type: Spontaneous
  Country: UM (occurrence: UM)
  Receive Date: 20190701
  Receipt Date: 20190701
  Transmission Date: 20191004
  Serious: No
  Sender: FDA-Public Use
  Company Number: None

PATIENT
  Age: 42 Year
  Sex: Female
  Weight: 87.75 kg

DRUGS (1)
  1. AIMOVIG [Suspect]
     Active Substance: ERENUMAB-AOOE
     Indication: MIGRAINE
     Dosage: ?          QUANTITY:1 INJECTION(S);OTHER FREQUENCY:EVERY MONTH;?
     Route: 058
     Dates: start: 20180810

REACTIONS (5)
  - Fatigue [None]
  - Influenza like illness [None]
  - Weight increased [None]
  - Anxiety [None]
  - Myalgia [None]

NARRATIVE: CASE EVENT DATE: 20180810
